FAERS Safety Report 15580944 (Version 4)
Quarter: 2018Q4

REPORT INFORMATION
  Report Type: Report from Study
  Country: CA (occurrence: CA)
  Receive Date: 20181102
  Receipt Date: 20181120
  Transmission Date: 20190205
  Serious: Yes (Other)
  Sender: FDA-Public Use
  Company Number: PHHY2018CA143883

PATIENT
  Sex: Female

DRUGS (8)
  1. RANITIDINE. [Suspect]
     Active Substance: RANITIDINE
     Indication: CHRONIC SPONTANEOUS URTICARIA
     Dosage: UNK
     Route: 065
  2. AERIUS (DESLORATADINE) [Concomitant]
     Active Substance: DESLORATADINE
     Indication: CHRONIC SPONTANEOUS URTICARIA
     Route: 065
  3. CICLOSPORIN [Suspect]
     Active Substance: CYCLOSPORINE
     Indication: CHRONIC SPONTANEOUS URTICARIA
     Route: 065
  4. BILAXTEN [Concomitant]
     Active Substance: BILASTINE
     Indication: CHRONIC SPONTANEOUS URTICARIA
     Dosage: 20 MG, QD
     Route: 065
     Dates: start: 2018
  5. BENADRYL [Concomitant]
     Active Substance: DIPHENHYDRAMINE HYDROCHLORIDE
     Indication: CHRONIC SPONTANEOUS URTICARIA
     Route: 065
  6. PREDNISONE. [Concomitant]
     Active Substance: PREDNISONE
     Indication: CHRONIC SPONTANEOUS URTICARIA
     Route: 065
  7. MAGNESIUM [Concomitant]
     Active Substance: MAGNESIUM
     Indication: PRODUCT USED FOR UNKNOWN INDICATION
     Dosage: 1 DF, QD
     Route: 048
  8. REACTINE [Concomitant]
     Indication: CHRONIC SPONTANEOUS URTICARIA
     Route: 065

REACTIONS (65)
  - Abdominal distension [Unknown]
  - Gingival swelling [Unknown]
  - Dyspepsia [Unknown]
  - Peripheral swelling [Recovering/Resolving]
  - Swelling face [Recovering/Resolving]
  - Dyschezia [Unknown]
  - Joint swelling [Recovering/Resolving]
  - Dyspnoea [Unknown]
  - Asthenia [Unknown]
  - Abdominal pain [Unknown]
  - Nausea [Unknown]
  - Eructation [Unknown]
  - Temperature intolerance [Unknown]
  - Angioedema [Unknown]
  - Genital swelling [Recovering/Resolving]
  - Oral pain [Unknown]
  - Eye irritation [Unknown]
  - Pruritus [Recovering/Resolving]
  - Dry mouth [Unknown]
  - Tremor [Unknown]
  - Suffocation feeling [Unknown]
  - Tension headache [Unknown]
  - Diarrhoea [Unknown]
  - Sticky skin [Unknown]
  - Swelling [Recovering/Resolving]
  - Somnolence [Unknown]
  - Thirst [Unknown]
  - Dizziness [Unknown]
  - Abdominal discomfort [Unknown]
  - Back pain [Unknown]
  - Hyperhidrosis [Unknown]
  - Flatulence [Unknown]
  - Myalgia [Unknown]
  - Urine analysis abnormal [Unknown]
  - Irritable bowel syndrome [Unknown]
  - Constipation [Unknown]
  - Pain of skin [Unknown]
  - Burning sensation [Unknown]
  - Eye discharge [Unknown]
  - Nasal pruritus [Unknown]
  - Eye swelling [Unknown]
  - Yawning [Unknown]
  - Breath odour [Unknown]
  - Pain in jaw [Unknown]
  - Hyperacusis [Unknown]
  - Weight decreased [Unknown]
  - Hot flush [Unknown]
  - Skin swelling [Unknown]
  - Rash [Not Recovered/Not Resolved]
  - Paraesthesia [Unknown]
  - Throat irritation [Unknown]
  - Dysuria [Unknown]
  - Fatigue [Unknown]
  - Seborrhoea [Unknown]
  - Alopecia [Unknown]
  - Feeling hot [Unknown]
  - Pelvic pain [Not Recovered/Not Resolved]
  - Eye pruritus [Unknown]
  - Pain [Unknown]
  - Defaecation urgency [Unknown]
  - Gastrointestinal disorder [Unknown]
  - Keloid scar [Unknown]
  - Dysmenorrhoea [Unknown]
  - Vomiting [Unknown]
  - Non-cardiac chest pain [Unknown]

NARRATIVE: CASE EVENT DATE: 2018
